FAERS Safety Report 9948079 (Version 1)
Quarter: 2014Q1

REPORT INFORMATION
  Report Type: Report from Study
  Country: US (occurrence: US)
  Receive Date: 20140303
  Receipt Date: 20140303
  Transmission Date: 20141002
  Serious: No
  Sender: FDA-Public Use
  Company Number: US-ABBVIE-13P-163-1061081-00

PATIENT
  Age: 17 Year
  Sex: Male

DRUGS (2)
  1. HUMIRA [Suspect]
     Indication: PSORIATIC ARTHROPATHY
     Dates: start: 20130219, end: 20130305
  2. METHOTREXATE [Concomitant]
     Indication: PSORIATIC ARTHROPATHY
     Dosage: 2.5MG 6 EVERY WEDNESDAY

REACTIONS (2)
  - Device malfunction [Not Recovered/Not Resolved]
  - Drug dose omission [Not Recovered/Not Resolved]
